FAERS Safety Report 16430282 (Version 1)
Quarter: 2019Q2

REPORT INFORMATION
  Report Type: Spontaneous
  Country: FR (occurrence: FR)
  Receive Date: 20190614
  Receipt Date: 20190614
  Transmission Date: 20190711
  Serious: Yes (Hospitalization)
  Sender: FDA-Public Use
  Company Number: FR-ACCORD-132844

PATIENT
  Age: 51 Year
  Sex: Female
  Weight: 85.3 kg

DRUGS (10)
  1. SURGESTONE [Concomitant]
     Active Substance: PROMEGESTONE
     Dosage: STRENGTH 0.500 MG
  2. DEXERYL [Concomitant]
  3. SPASFON [Concomitant]
  4. PACLITAXEL/PACLITAXEL LIPOSOME [Suspect]
     Active Substance: PACLITAXEL
     Indication: BREAST CANCER
     Route: 041
     Dates: start: 20190314, end: 20190329
  5. VASTAREL [Concomitant]
     Active Substance: TRIMETAZIDINE DIHYDROCHLORIDE
     Dosage: STRENGTH 35 MG,MODIFIED RELEASE FILM-COATED TABLET
  6. DESLORATADINE. [Concomitant]
     Active Substance: DESLORATADINE
  7. VOLTARENE [Concomitant]
  8. SOTALOL. [Concomitant]
     Active Substance: SOTALOL
  9. OMEPRAZOLE. [Concomitant]
     Active Substance: OMEPRAZOLE
  10. DOLIPRANE [Concomitant]
     Active Substance: ACETAMINOPHEN

REACTIONS (1)
  - Acute pulmonary oedema [Recovered/Resolved]

NARRATIVE: CASE EVENT DATE: 20190328
